FAERS Safety Report 22344116 (Version 1)
Quarter: 2023Q2

REPORT INFORMATION
  Report Type: Spontaneous
  Country: CA (occurrence: CA)
  Receive Date: 20230519
  Receipt Date: 20230519
  Transmission Date: 20230721
  Serious: Yes (Other)
  Sender: FDA-Public Use
  Company Number: CA-GLAXOSMITHKLINE-CA2023AMR069277

PATIENT

DRUGS (1)
  1. FLUTICASONE PROPIONATE [Suspect]
     Active Substance: FLUTICASONE PROPIONATE
     Indication: Inflammation
     Dosage: 500 ?G, QD
     Route: 061

REACTIONS (3)
  - Stoma site inflammation [Unknown]
  - Drug ineffective [Unknown]
  - Product substitution issue [Unknown]
